FAERS Safety Report 8223539-X (Version None)
Quarter: 2012Q1

REPORT INFORMATION
  Report Type: 
  Country: None (occurrence: None)
  Receive Date: 20120321
  Receipt Date: 20120314
  Transmission Date: 20120608
  Serious: Yes (Other)
  Sender: FDA-Public Use
  Company Number: US-PFIZER INC-2012069348

PATIENT
  Age: 47 Year
  Sex: Female

DRUGS (2)
  1. NORGESTREL AND ETHINYL ESTRADIOL [Suspect]
     Indication: FIBROMA
  2. NORGESTREL AND ETHINYL ESTRADIOL [Suspect]
     Indication: OFF LABEL USE
     Dosage: UNK

REACTIONS (2)
  - VAGINAL HAEMORRHAGE [None]
  - ABDOMINAL DISTENSION [None]
